FAERS Safety Report 18731947 (Version 1)
Quarter: 2021Q1

REPORT INFORMATION
  Report Type: Spontaneous
  Country: US (occurrence: US)
  Receive Date: 20210112
  Receipt Date: 20210112
  Transmission Date: 20210419
  Serious: Yes (Other)
  Sender: FDA-Public Use
  Company Number: US-PFIZER INC-2021015861

PATIENT
  Age: 67 Year
  Sex: Male

DRUGS (6)
  1. PEPTO?BISMOL [Suspect]
     Active Substance: BISMUTH SUBSALICYLATE
     Dosage: UNK
  2. TAGAMET [Concomitant]
     Active Substance: CIMETIDINE
     Dosage: 800 MG, DAILY (2 IN THE MORNING AND 2 IN THE AFTERNOON)
  3. AMLODIPINE BESYLATE. [Concomitant]
     Active Substance: AMLODIPINE BESYLATE
     Dosage: 10 MG, 1X/DAY
  4. DEPO?TESTOSTERONE [Suspect]
     Active Substance: TESTOSTERONE CYPIONATE
     Indication: TESTIS CANCER
     Dosage: 200 MG (ONE EVERY 14 DAY)(EVERY 2 WEEKS, 14 DAYS)
     Route: 030
     Dates: start: 2000
  5. METOPROLOL TARTRATE. [Concomitant]
     Active Substance: METOPROLOL TARTRATE
     Dosage: 100 MG, 2X/DAY
  6. PANTOPRAZOLE SODIUM. [Concomitant]
     Active Substance: PANTOPRAZOLE SODIUM
     Dosage: 40 MG, 2X/DAY

REACTIONS (10)
  - Pain [Unknown]
  - Arthralgia [Unknown]
  - Back pain [Unknown]
  - Diarrhoea [Recovered/Resolved]
  - Glaucoma [Recovered/Resolved]
  - Weight decreased [Recovering/Resolving]
  - Blood disorder [Unknown]
  - Liver disorder [Recovered/Resolved]
  - Gait disturbance [Unknown]
  - Neck pain [Unknown]
